FAERS Safety Report 25939515 (Version 2)
Quarter: 2025Q4

REPORT INFORMATION
  Report Type: Report from Study
  Country: US (occurrence: US)
  Receive Date: 20251020
  Receipt Date: 20251111
  Transmission Date: 20260117
  Serious: No
  Sender: BIOVITRUM
  Company Number: US-BIOVITRUM-2025-US-013962

PATIENT
  Age: 9 Year
  Sex: Female

DRUGS (2)
  1. KINERET [Suspect]
     Active Substance: ANAKINRA
     Indication: Ear malformation
     Dosage: QD
     Route: 058
     Dates: start: 20250923
  2. KINERET [Suspect]
     Active Substance: ANAKINRA
     Dosage: DAILY
     Route: 058
     Dates: start: 20251016

REACTIONS (11)
  - Injection site pain [Unknown]
  - Injection site erythema [Recovering/Resolving]
  - Injection site inflammation [Unknown]
  - Injection site warmth [Unknown]
  - Injection site pruritus [Unknown]
  - Injection site bruising [Unknown]
  - Condition aggravated [Unknown]
  - Injection site discolouration [Unknown]
  - Product dose omission issue [Unknown]
  - Injection site swelling [Unknown]
  - Off label use [Not Recovered/Not Resolved]

NARRATIVE: CASE EVENT DATE: 20251016
